FAERS Safety Report 9331067 (Version 1)
Quarter: 2013Q2

REPORT INFORMATION
  Report Type: Spontaneous
  Country: US (occurrence: US)
  Receive Date: 20130605
  Receipt Date: 20130605
  Transmission Date: 20140414
  Serious: Yes (Hospitalization, Other)
  Sender: FDA-Public Use
  Company Number: US-JNJFOC-20130521494

PATIENT
  Age: 37 Year
  Sex: Female

DRUGS (2)
  1. ACETAMINOPHEN [Suspect]
     Route: 048
  2. ACETAMINOPHEN [Suspect]
     Indication: PRODUCT USED FOR UNKNOWN INDICATION
     Route: 048

REACTIONS (8)
  - Brain herniation [Recovered/Resolved]
  - Renal failure acute [Unknown]
  - Toxicity to various agents [Unknown]
  - Encephalopathy [Recovered/Resolved]
  - Coagulopathy [Unknown]
  - Hyperbilirubinaemia [Recovering/Resolving]
  - Liver function test abnormal [Recovering/Resolving]
  - International normalised ratio increased [Unknown]
